FAERS Safety Report 19393906 (Version 1)
Quarter: 2021Q2

REPORT INFORMATION
  Report Type: Spontaneous
  Country: US (occurrence: US)
  Receive Date: 20210608
  Receipt Date: 20210608
  Transmission Date: 20210717
  Serious: No
  Sender: FDA-Public Use
  Company Number: None

PATIENT
  Age: 36 Year
  Sex: Female
  Weight: 56.25 kg

DRUGS (1)
  1. KEFLEX [Suspect]
     Active Substance: CEPHALEXIN
     Indication: MASTITIS
     Dates: start: 20210301, end: 20210308

REACTIONS (3)
  - Flatulence [None]
  - Constipation [None]
  - Abdominal pain upper [None]

NARRATIVE: CASE EVENT DATE: 20210301
